FAERS Safety Report 8837482 (Version 2)
Quarter: 2014Q1

REPORT INFORMATION
  Report Type: Spontaneous
  Country: US (occurrence: US)
  Receive Date: 20121012
  Receipt Date: 20140127
  Transmission Date: 20141002
  Serious: No
  Sender: FDA-Public Use
  Company Number: US-009507513-1210USA004718

PATIENT
  Age: 16 Year
  Sex: Female
  Weight: 57.14 kg

DRUGS (1)
  1. NEXPLANON [Suspect]
     Indication: CONTRACEPTION
     Dosage: 1 DF, UNK
     Dates: start: 20120917

REACTIONS (4)
  - Abdominal pain [Unknown]
  - Arthralgia [Unknown]
  - Metrorrhagia [Unknown]
  - Amenorrhoea [Recovered/Resolved]
